FAERS Safety Report 9011771 (Version 1)
Quarter: 2013Q1

REPORT INFORMATION
  Report Type: Spontaneous
  Country: US (occurrence: US)
  Receive Date: 20130113
  Receipt Date: 20130113
  Transmission Date: 20140127
  Serious: Yes (Other)
  Sender: FDA-Public Use
  Company Number: US-009507513-0907USA03616

PATIENT
  Age: 4 Year
  Sex: Female
  Weight: 14.61 kg

DRUGS (1)
  1. SINGULAIR [Suspect]
     Indication: MULTIPLE ALLERGIES
     Dosage: 4 MG, QD
     Route: 048
     Dates: start: 20060901, end: 20080301

REACTIONS (7)
  - Bipolar disorder [Recovered/Resolved]
  - Crying [Recovered/Resolved]
  - Tic [Not Recovered/Not Resolved]
  - Abdominal pain upper [Recovered/Resolved]
  - Anger [Recovered/Resolved]
  - Headache [Recovered/Resolved]
  - Muscle spasms [Recovered/Resolved]
